FAERS Safety Report 24114546 (Version 2)
Quarter: 2024Q3

REPORT INFORMATION
  Report Type: Spontaneous
  Country: US (occurrence: US)
  Receive Date: 20240720
  Receipt Date: 20240726
  Transmission Date: 20241017
  Serious: No
  Sender: AVERITAS
  Company Number: US-GRUNENTHAL-2024-123091

PATIENT
  Sex: Male

DRUGS (3)
  1. QUTENZA [Suspect]
     Active Substance: CAPSAICIN
     Indication: Spinal operation
     Dosage: UNK UNK, ONCE
     Route: 061
     Dates: start: 20240716, end: 20240716
  2. QUTENZA [Suspect]
     Active Substance: CAPSAICIN
     Indication: Neuropathy peripheral
     Dosage: UNK UNK, ONCE
     Route: 061
     Dates: start: 202402, end: 202402
  3. QUTENZA [Suspect]
     Active Substance: CAPSAICIN
     Dosage: UNK UNK, ONCE
     Route: 061
     Dates: start: 202404, end: 202404

REACTIONS (5)
  - Application site pain [Unknown]
  - Application site pain [Unknown]
  - Product use issue [Unknown]
  - Application site pain [Recovered/Resolved]
  - Application site pain [Recovered/Resolved]

NARRATIVE: CASE EVENT DATE: 20240201
